FAERS Safety Report 6715393-X (Version None)
Quarter: 2010Q2

REPORT INFORMATION
  Report Type: 
  Country: None (occurrence: None)
  Receive Date: 20100507
  Receipt Date: 20100427
  Transmission Date: 20101027
  Serious: Yes (Hospitalization)
  Sender: FDA-Public Use
  Company Number: KR-TEVA-171819ISR

PATIENT
  Sex: Male

DRUGS (7)
  1. FLUOROURACIL [Suspect]
     Indication: COLORECTAL CANCER
     Route: 040
     Dates: start: 20080306, end: 20080427
  2. FLUOROURACIL [Suspect]
     Route: 041
     Dates: start: 20080306
  3. FOLINIC ACID [Suspect]
     Indication: COLORECTAL CANCER
     Route: 042
     Dates: start: 20080306, end: 20080425
  4. IRINOTECAN HYDROCHLORIDE [Suspect]
     Indication: COLORECTAL CANCER
     Route: 042
     Dates: start: 20080306, end: 20080425
  5. SUNITINIB (BLINDED THERAPY) [Suspect]
     Indication: COLORECTAL CANCER
     Route: 048
     Dates: start: 20080306, end: 20080430
  6. OXYCODONE HYDROCHLORIDE [Concomitant]
     Route: 048
     Dates: start: 20080424
  7. MORPHINE SULFATE [Concomitant]
     Route: 042
     Dates: start: 20080424

REACTIONS (3)
  - DIARRHOEA [None]
  - NEUTROPENIA [None]
  - RENAL FAILURE ACUTE [None]
